FAERS Safety Report 4585521-3 (Version None)
Quarter: 2005Q1

REPORT INFORMATION
  Report Type: 
  Country: None (occurrence: None)
  Receive Date: 20050214
  Receipt Date: 20040913
  Transmission Date: 20050727
  Serious: Yes (Death, Hospitalization)
  Sender: FDA-Public Use
  Company Number: 05-060

PATIENT
  Age: 59 Year
  Sex: Female

DRUGS (8)
  1. DEXAMETHASONE [Suspect]
     Indication: MULTIPLE MYELOMA
     Dosage: 40 MG/DAY, ORAL
     Route: 048
     Dates: start: 20020712, end: 20020729
  2. DEXAMETHASONE [Suspect]
     Indication: MYELOMA RECURRENCE
     Dosage: 40 MG/DAY, ORAL
     Route: 048
     Dates: start: 20020712, end: 20020729
  3. FONDAPARINUX [Concomitant]
  4. VANCOMYCIN [Concomitant]
  5. CEFEPIME [Concomitant]
  6. PANTOPRAZOLE [Concomitant]
  7. SERTRALINE CEFAZOLIN [Concomitant]
  8. ORPHENADRINE [Concomitant]

REACTIONS (10)
  - CATHETER RELATED INFECTION [None]
  - CONFUSIONAL STATE [None]
  - DEPRESSED LEVEL OF CONSCIOUSNESS [None]
  - FAECAL INCONTINENCE [None]
  - FALL [None]
  - FEEDING DISORDER [None]
  - FEMUR FRACTURE [None]
  - MENINGITIS ASEPTIC [None]
  - MYOCLONUS [None]
  - URINARY INCONTINENCE [None]
